FAERS Safety Report 6418582-7 (Version None)
Quarter: 2009Q4

REPORT INFORMATION
  Report Type: 
  Country: None (occurrence: None)
  Receive Date: 20091028
  Receipt Date: 20091015
  Transmission Date: 20100525
  Serious: Yes (Other)
  Sender: FDA-Public Use
  Company Number: PHEH2009US09460

PATIENT
  Sex: Male
  Weight: 92.063 kg

DRUGS (1)
  1. TEKTURNA [Suspect]
     Dosage: 150 MG, UNK
     Dates: start: 20090422

REACTIONS (3)
  - NASAL CONGESTION [None]
  - PERIORBITAL OEDEMA [None]
  - SWELLING FACE [None]
